FAERS Safety Report 9551482 (Version 1)
Quarter: 2013Q3

REPORT INFORMATION
  Report Type: Spontaneous
  Country: US (occurrence: None)
  Receive Date: 20130724
  Receipt Date: 20130724
  Transmission Date: 20140515
  Serious: Yes (Hospitalization)
  Sender: FDA-Public Use
  Company Number: PHEH2012US010753

PATIENT
  Sex: Female

DRUGS (1)
  1. GLEEVEC [Suspect]
     Indication: CARCINOID TUMOUR OF THE SMALL BOWEL
     Route: 048

REACTIONS (5)
  - Oedema peripheral [None]
  - Nausea [None]
  - Fatigue [None]
  - Muscle spasms [None]
  - Fluid retention [None]
